FAERS Safety Report 23722346 (Version 1)
Quarter: 2024Q2

REPORT INFORMATION
  Report Type: Spontaneous
  Country: US (occurrence: None)
  Receive Date: 20240408
  Receipt Date: 20240408
  Transmission Date: 20240715
  Serious: Yes (Death)
  Sender: FDA-Public Use
  Company Number: None

PATIENT
  Age: 56 Year
  Sex: Female
  Weight: 59.4 kg

DRUGS (1)
  1. YESCARTA [Suspect]
     Active Substance: AXICABTAGENE CILOLEUCEL
     Indication: Diffuse large B-cell lymphoma
     Route: 042
     Dates: start: 20240311

REACTIONS (11)
  - Immune effector cell-associated neurotoxicity syndrome [None]
  - Aphasia [None]
  - Disorientation [None]
  - Tremor [None]
  - Cytokine release syndrome [None]
  - Hypotension [None]
  - Pyrexia [None]
  - Shock [None]
  - Hyperkalaemia [None]
  - Acute respiratory failure [None]
  - Cardiac arrest [None]

NARRATIVE: CASE EVENT DATE: 20240311
